FAERS Safety Report 24316721 (Version 1)
Quarter: 2024Q3

REPORT INFORMATION
  Report Type: Spontaneous
  Country: US (occurrence: None)
  Receive Date: 20240912
  Receipt Date: 20240912
  Transmission Date: 20241017
  Serious: Yes (Hospitalization)
  Sender: Public
  Company Number: None

PATIENT
  Age: 84 Year
  Sex: Female

DRUGS (2)
  1. KEYTRUDA [Suspect]
     Active Substance: PEMBROLIZUMAB
     Indication: Endometrial cancer
  2. LENVIMA [Suspect]
     Active Substance: LENVATINIB

REACTIONS (12)
  - Brain fog [None]
  - Asthenia [None]
  - Dysstasia [None]
  - Blood pressure systolic increased [None]
  - Bundle branch block [None]
  - Cerebral haemorrhage [None]
  - Therapy cessation [None]
  - SARS-CoV-2 test positive [None]
  - Cough [None]
  - Oedema peripheral [None]
  - Weight decreased [None]
  - Decreased appetite [None]

NARRATIVE: CASE EVENT DATE: 20240903
